FAERS Safety Report 18051662 (Version 1)
Quarter: 2020Q3

REPORT INFORMATION
  Report Type: Report from Study
  Country: US (occurrence: US)
  Receive Date: 20200721
  Receipt Date: 20200721
  Transmission Date: 20201103
  Serious: Yes (Other)
  Sender: FDA-Public Use
  Company Number: US-BAUSCH-BL-2020-020310

PATIENT
  Age: 57 Year
  Sex: Female

DRUGS (2)
  1. NORCO [Concomitant]
     Active Substance: ACETAMINOPHEN\HYDROCODONE BITARTRATE
     Indication: PRODUCT USED FOR UNKNOWN INDICATION
  2. XIFAXAN [Suspect]
     Active Substance: RIFAXIMIN
     Indication: LIVER DISORDER
     Dosage: STOPPED 3 DAYS PRIOR TO INITIAL REPORT
     Route: 048
     Dates: start: 2016, end: 20200711

REACTIONS (8)
  - Hip surgery [Unknown]
  - Gait disturbance [Not Recovered/Not Resolved]
  - Hypophagia [Recovering/Resolving]
  - Balance disorder [Not Recovered/Not Resolved]
  - Loss of consciousness [Unknown]
  - Ill-defined disorder [Recovering/Resolving]
  - Insomnia [Recovering/Resolving]
  - Hip fracture [Unknown]

NARRATIVE: CASE EVENT DATE: 2020
